FAERS Safety Report 19491094 (Version 1)
Quarter: 2021Q3

REPORT INFORMATION
  Report Type: Spontaneous
  Country: DE (occurrence: DE)
  Receive Date: 20210705
  Receipt Date: 20210705
  Transmission Date: 20211014
  Serious: Yes (Death, Hospitalization)
  Sender: FDA-Public Use
  Company Number: DE-TEVA-2021-DE-1928353

PATIENT
  Age: 79 Year
  Sex: Male

DRUGS (5)
  1. TORASEMID [Suspect]
     Active Substance: TORSEMIDE
     Dosage: 10 MILLIGRAM DAILY; 1?0?0?0
     Route: 048
  2. MEMANTIN [Concomitant]
     Active Substance: MEMANTINE
     Dosage: 20 MILLIGRAM DAILY; 1?0?0?0
     Route: 048
  3. TAMSULOSIN [Concomitant]
     Active Substance: TAMSULOSIN
     Dosage: .4 MILLIGRAM DAILY; 1?0?0?0
     Route: 048
  4. PIPAMPERONE [Concomitant]
     Active Substance: PIPAMPERONE
     Dosage: 40 MG, 1?0.5?0.5?1
     Route: 048
  5. RISPERIDON [Suspect]
     Active Substance: RISPERIDONE
     Dosage: .5 MILLIGRAM DAILY; 1?0?0?0
     Route: 048

REACTIONS (3)
  - General physical health deterioration [Unknown]
  - Somnolence [Unknown]
  - Pyrexia [Unknown]
